FAERS Safety Report 11908429 (Version 1)
Quarter: 2016Q1

REPORT INFORMATION
  Report Type: Report from Study
  Country: BR (occurrence: BR)
  Receive Date: 20160111
  Receipt Date: 20160111
  Transmission Date: 20160526
  Serious: Yes (Other)
  Sender: FDA-Public Use
  Company Number: BR-ABBVIE-16K-020-1534452-00

PATIENT
  Age: 49 Year
  Sex: Male
  Weight: 75 kg

DRUGS (2)
  1. HUMIRA [Suspect]
     Active Substance: ADALIMUMAB
     Indication: ANKYLOSING SPONDYLITIS
     Route: 058
     Dates: start: 20150701, end: 20151002
  2. OMEPRAZOLE. [Concomitant]
     Active Substance: OMEPRAZOLE
     Indication: GASTRIC DISORDER
     Route: 048
     Dates: start: 201507

REACTIONS (12)
  - Weight decreased [Recovering/Resolving]
  - Cough [Unknown]
  - Dengue fever [Recovering/Resolving]
  - Ankylosing spondylitis [Recovering/Resolving]
  - Pain in extremity [Recovering/Resolving]
  - Disseminated tuberculosis [Recovering/Resolving]
  - Pharyngeal erythema [Recovered/Resolved]
  - Arthralgia [Recovering/Resolving]
  - Bronchitis [Unknown]
  - Abasia [Recovering/Resolving]
  - Pain [Recovering/Resolving]
  - Decreased appetite [Unknown]

NARRATIVE: CASE EVENT DATE: 2015
